FAERS Safety Report 8463360-0 (Version None)
Quarter: 2012Q2

REPORT INFORMATION
  Report Type: 
  Country: None (occurrence: None)
  Receive Date: 20120625
  Receipt Date: 20120614
  Transmission Date: 20120825
  Serious: Yes (Hospitalization)
  Sender: FDA-Public Use
  Company Number: JP-VERTEX PHARMACEUTICALS INC.-AE-2012-009041

PATIENT
  Age: 48 Year
  Sex: Male

DRUGS (5)
  1. TELAVIC (TELAPREVIR) [Suspect]
     Route: 048
     Dates: start: 20120613
  2. TELAVIC (TELAPREVIR) [Suspect]
     Route: 048
     Dates: start: 20120521, end: 20120606
  3. PEG-INTRON [Concomitant]
     Route: 058
     Dates: start: 20120521
  4. SELBEX [Concomitant]
     Route: 048
     Dates: start: 20120521
  5. REBETOL [Concomitant]
     Route: 048
     Dates: start: 20120521

REACTIONS (1)
  - BLOOD CREATININE INCREASED [None]
